FAERS Safety Report 10057928 (Version 2)
Quarter: 2014Q2

REPORT INFORMATION
  Report Type: Spontaneous
  Country: JP (occurrence: JP)
  Receive Date: 20140404
  Receipt Date: 20140404
  Transmission Date: 20141212
  Serious: Yes (Other)
  Sender: FDA-Public Use
  Company Number: JP-AMGEN-JPNSP2014012028

PATIENT
  Age: 68 Year
  Sex: Male

DRUGS (1)
  1. ARANESP [Suspect]
     Indication: NEPHROGENIC ANAEMIA
     Dosage: 100 MUG, 1X/WEEK
     Route: 040
     Dates: end: 201402

REACTIONS (1)
  - Aplasia pure red cell [Not Recovered/Not Resolved]
